FAERS Safety Report 12978387 (Version 2)
Quarter: 2017Q4

REPORT INFORMATION
  Report Type: Spontaneous
  Country: US (occurrence: US)
  Receive Date: 20161128
  Receipt Date: 20171023
  Transmission Date: 20180320
  Serious: No
  Sender: FDA-Public Use
  Company Number: US-PFIZER INC-2016541921

PATIENT
  Age: 73 Year
  Sex: Male

DRUGS (1)
  1. INLYTA [Suspect]
     Active Substance: AXITINIB
     Indication: RENAL CANCER
     Dosage: 5 MG, DAILY
     Route: 048
     Dates: start: 20160331

REACTIONS (2)
  - Headache [Unknown]
  - Insomnia [Unknown]

NARRATIVE: CASE EVENT DATE: 20161118
